FAERS Safety Report 23902310 (Version 1)
Quarter: 2024Q2

REPORT INFORMATION
  Report Type: Spontaneous
  Country: US (occurrence: None)
  Receive Date: 20240527
  Receipt Date: 20240527
  Transmission Date: 20240716
  Serious: No
  Sender: FDA-Public Use
  Company Number: US-ROCHE-3360491

PATIENT
  Sex: Male
  Weight: 81.72 kg

DRUGS (9)
  1. ACTEMRA [Suspect]
     Active Substance: TOCILIZUMAB
     Indication: Giant cell arteritis
     Dosage: STRENGTH: 162MG/0.9ML, RESUMED ON 17/MAY/2023, LAST DOSE ON 24/MAY/2023
     Route: 058
     Dates: start: 20230510
  2. ACTEMRA [Suspect]
     Active Substance: TOCILIZUMAB
  3. ACTEMRA [Suspect]
     Active Substance: TOCILIZUMAB
     Indication: Rheumatoid arthritis
  4. ACTEMRA [Suspect]
     Active Substance: TOCILIZUMAB
  5. ENBREL [Suspect]
     Active Substance: BENZYL ALCOHOL\ETANERCEPT
     Indication: Rheumatoid arthritis
     Route: 042
  6. PREDNISONE [Suspect]
     Active Substance: PREDNISONE
     Indication: Rheumatoid arthritis
     Route: 065
  7. PREDNISONE [Suspect]
     Active Substance: PREDNISONE
     Indication: Giant cell arteritis
     Route: 048
  8. COMBIGAN [Concomitant]
     Active Substance: BRIMONIDINE TARTRATE\TIMOLOL MALEATE
     Indication: Glaucoma
     Route: 047
  9. LUMIGAN [Concomitant]
     Active Substance: BIMATOPROST
     Indication: Glaucoma
     Route: 047

REACTIONS (12)
  - Constipation [Not Recovered/Not Resolved]
  - Dyspepsia [Unknown]
  - Fungal infection [Recovering/Resolving]
  - COVID-19 [Recovered/Resolved]
  - Cough [Recovered/Resolved]
  - Decreased appetite [Not Recovered/Not Resolved]
  - Diplopia [Not Recovered/Not Resolved]
  - Mood swings [Not Recovered/Not Resolved]
  - Device malfunction [Unknown]
  - Product dose omission issue [Unknown]
  - Product quality issue [Unknown]
  - Wrong technique in device usage process [Unknown]

NARRATIVE: CASE EVENT DATE: 20230510
